FAERS Safety Report 4506956-0 (Version None)
Quarter: 2004Q4

REPORT INFORMATION
  Report Type: 
  Country: None (occurrence: None)
  Receive Date: 20041117
  Receipt Date: 20041101
  Transmission Date: 20050328
  Serious: Yes (Death)
  Sender: FDA-Public Use
  Company Number: 9170

PATIENT
  Age: 61 Year
  Sex: Male

DRUGS (7)
  1. METHOTREXATE [Suspect]
     Dosage: 25 MG
     Route: 048
     Dates: end: 20040221
  2. ETANERCEPT [Suspect]
     Indication: RHEUMATOID ARTHRITIS
     Route: 030
     Dates: start: 20030606
  3. OMEGA-3 ACID ETHYL ESTERS [Concomitant]
  4. CALCIUM CARBONATE X [Concomitant]
  5. MULTIBIONTA [Concomitant]
  6. ALENDRONATE SODIUM [Concomitant]
  7. PREDNISOLONE [Concomitant]

REACTIONS (3)
  - EYE DISORDER [None]
  - MYOCARDIAL INFARCTION [None]
  - SUDDEN DEATH [None]
